FAERS Safety Report 6896828-9 (Version None)
Quarter: 2010Q3

REPORT INFORMATION
  Report Type: 
  Country: None (occurrence: None)
  Receive Date: 20100802
  Receipt Date: 20070213
  Transmission Date: 20110219
  Serious: No
  Sender: FDA-Public Use
  Company Number: US-PFIZER INC-2007012392

PATIENT
  Sex: Female
  Weight: 56.7 kg

DRUGS (9)
  1. LYRICA [Suspect]
     Indication: HERPES ZOSTER
  2. LYRICA [Suspect]
     Indication: POST HERPETIC NEURALGIA
  3. PREDNISONE [Concomitant]
  4. VICODIN [Concomitant]
  5. XALATAN [Concomitant]
  6. LEVOTHYROXINE SODIUM [Concomitant]
  7. PEPCID [Concomitant]
  8. ALLEGRA [Concomitant]
  9. NORVASC [Concomitant]

REACTIONS (1)
  - VISION BLURRED [None]
